FAERS Safety Report 6992226-8 (Version None)
Quarter: 2010Q3

REPORT INFORMATION
  Report Type: 
  Country: None (occurrence: None)
  Receive Date: 20100917
  Receipt Date: 20100908
  Transmission Date: 20110219
  Serious: Yes (Other)
  Sender: FDA-Public Use
  Company Number: BR-PFIZER INC-2010113875

PATIENT
  Age: 49 Year
  Sex: Female
  Weight: 67.1 kg

DRUGS (7)
  1. CHAMPIX [Suspect]
     Indication: TOBACCO USER
     Dosage: 0.5 MG, 1X/DAY
     Route: 048
     Dates: start: 20100625
  2. ATACAND [Concomitant]
     Indication: HYPERTENSION
     Dosage: 160 MG, 2X/DAY
     Dates: start: 20070101
  3. NATRILIX [Concomitant]
     Indication: HYPERTENSION
     Dosage: 2.5 MG, 2X/DAY
  4. NATRILIX [Concomitant]
     Indication: CARDIAC DISORDER
  5. AMLODIPINE BESILATE [Concomitant]
     Indication: BLOOD PRESSURE
     Dosage: 2.5 MG, 2X/DAY
     Dates: start: 20070101
  6. AMLODIPINE BESILATE [Concomitant]
     Indication: CARDIAC DISORDER
  7. SOMALGIN [Concomitant]
     Dosage: 100 MG, 2X/DAY
     Dates: start: 20070101

REACTIONS (1)
  - NERVOUSNESS [None]
